FAERS Safety Report 18578105 (Version 1)
Quarter: 2020Q4

REPORT INFORMATION
  Report Type: Spontaneous
  Country: CL (occurrence: CL)
  Receive Date: 20201204
  Receipt Date: 20201204
  Transmission Date: 20210114
  Serious: Yes (Other)
  Sender: FDA-Public Use
  Company Number: CL-ROCHE-2710599

PATIENT
  Sex: Male

DRUGS (2)
  1. CHLORAMBUCIL [Concomitant]
     Active Substance: CHLORAMBUCIL
     Indication: CHRONIC LYMPHOCYTIC LEUKAEMIA
     Dosage: DOSE AND FREQUENCY WERE NOT REPORTED
     Route: 065
     Dates: start: 2018
  2. GAZYVA [Suspect]
     Active Substance: OBINUTUZUMAB
     Indication: CHRONIC LYMPHOCYTIC LEUKAEMIA
     Dosage: DOSE AND FREQUENCY WERE NOT REPORTED
     Route: 042
     Dates: start: 2018

REACTIONS (2)
  - Chronic lymphocytic leukaemia [Unknown]
  - Leukocytosis [Unknown]
